FAERS Safety Report 8603532-5 (Version None)
Quarter: 2012Q3

REPORT INFORMATION
  Report Type: 
  Country: None (occurrence: None)
  Receive Date: 20120817
  Receipt Date: 20120809
  Transmission Date: 20120928
  Serious: Yes (Life-Threatening, Hospitalization)
  Sender: FDA-Public Use
  Company Number: GB-PFIZER INC-2012124325

PATIENT
  Age: 66 Year
  Sex: Male
  Weight: 60 kg

DRUGS (3)
  1. CYTARABINE [Suspect]
     Indication: ACUTE MYELOID LEUKAEMIA
     Dosage: UNK
     Dates: start: 20070920, end: 20070922
  2. DAUNORUBICIN HCL [Suspect]
     Indication: ACUTE MYELOID LEUKAEMIA
     Dosage: UNK
     Dates: start: 20070920, end: 20070922
  3. MYLOTARG [Suspect]
     Indication: ACUTE MYELOID LEUKAEMIA
     Dosage: 5.3 MG (TOTAL DOSE)
     Route: 042
     Dates: start: 20070920, end: 20070922

REACTIONS (2)
  - NEUTROPENIC SEPSIS [None]
  - MULTI-ORGAN FAILURE [None]
